FAERS Safety Report 8530867-7 (Version None)
Quarter: 2012Q3

REPORT INFORMATION
  Report Type: 
  Country: None (occurrence: None)
  Receive Date: 20120723
  Receipt Date: 20120712
  Transmission Date: 20120928
  Serious: Yes (Hospitalization)
  Sender: FDA-Public Use
  Company Number: SE-SANOFI-AVENTIS-2012SA049754

PATIENT
  Age: 76 Year
  Sex: Female

DRUGS (2)
  1. DRONEDARONE HCL [Suspect]
     Dosage: STRENGTH: 400MG
     Route: 048
     Dates: start: 20101001, end: 20111124
  2. WARFARIN SODIUM [Concomitant]

REACTIONS (1)
  - LUNG INFILTRATION [None]
